FAERS Safety Report 7820760-7 (Version None)
Quarter: 2011Q4

REPORT INFORMATION
  Report Type: 
  Country: None (occurrence: None)
  Receive Date: 20111018
  Receipt Date: 20111004
  Transmission Date: 20120403
  Serious: Yes (Hospitalization)
  Sender: FDA-Public Use
  Company Number: US-BAYER-2011-006657

PATIENT
  Age: 36 Year
  Sex: Female
  Weight: 93.878 kg

DRUGS (7)
  1. YASMIN [Suspect]
     Indication: PREMENSTRUAL SYNDROME
  2. LEXAPRO [Concomitant]
  3. RELPAX [Concomitant]
     Dosage: UNK
     Dates: start: 20030101, end: 20090101
  4. YASMIN [Suspect]
     Indication: ORAL CONTRACEPTION
     Dosage: UNK
     Dates: start: 20050101, end: 20090101
  5. NSAID'S [Concomitant]
  6. DROSPIRENONE AND ETHINYL ESTRADIOL [Suspect]
     Dosage: UNK
     Dates: start: 20050101, end: 20090101
  7. TOPAMAX [Concomitant]
     Dosage: UNK
     Dates: start: 20030101, end: 20090101

REACTIONS (6)
  - DYSPNOEA [None]
  - BRONCHITIS [None]
  - PAIN [None]
  - PULMONARY EMBOLISM [None]
  - ANXIETY [None]
  - EMOTIONAL DISTRESS [None]
